FAERS Safety Report 7957349-5 (Version None)
Quarter: 2011Q4

REPORT INFORMATION
  Report Type: 
  Country: None (occurrence: None)
  Receive Date: 20111205
  Receipt Date: 20111128
  Transmission Date: 20120403
  Serious: Yes (Other)
  Sender: FDA-Public Use
  Company Number: PHHY2011GB103867

PATIENT
  Age: 35 Year
  Sex: Female

DRUGS (3)
  1. CITALOPRAM [Concomitant]
  2. METRONIDAZOLE [Suspect]
     Indication: VAGINITIS BACTERIAL
     Dosage: 2 G, UNK
     Route: 048
     Dates: start: 20111109, end: 20111109
  3. TRIMETHOPRIM [Concomitant]

REACTIONS (4)
  - DYSPNOEA [None]
  - RASH GENERALISED [None]
  - SWELLING FACE [None]
  - ANAPHYLACTIC REACTION [None]
